FAERS Safety Report 12679714 (Version 1)
Quarter: 2016Q3

REPORT INFORMATION
  Report Type: Spontaneous
  Country: US (occurrence: None)
  Receive Date: 20160823
  Receipt Date: 20160823
  Transmission Date: 20161109
  Serious: Yes (Other)
  Sender: FDA-Public Use
  Company Number: None

PATIENT
  Age: 30 Year
  Sex: Female
  Weight: 61.24 kg

DRUGS (4)
  1. QUDEXY XR [Suspect]
     Active Substance: TOPIRAMATE
     Indication: MIGRAINE
     Route: 048
     Dates: start: 20160821, end: 20160822
  2. LAMICTAL [Concomitant]
     Active Substance: LAMOTRIGINE
  3. DEXILANT [Concomitant]
     Active Substance: DEXLANSOPRAZOLE
  4. METOPROLOL. [Concomitant]
     Active Substance: METOPROLOL

REACTIONS (4)
  - Pruritus [None]
  - Mood altered [None]
  - Abdominal discomfort [None]
  - Vision blurred [None]

NARRATIVE: CASE EVENT DATE: 20160822
